FAERS Safety Report 11077905 (Version 2)
Quarter: 2015Q2

REPORT INFORMATION
  Report Type: Spontaneous
  Country: US (occurrence: US)
  Receive Date: 20150430
  Receipt Date: 20150617
  Transmission Date: 20150821
  Serious: No
  Sender: FDA-Public Use
  Company Number: US-009507513-1504USA000936

PATIENT
  Age: 19 Year
  Sex: Female
  Weight: 66.21 kg

DRUGS (1)
  1. IMPLANON [Suspect]
     Active Substance: ETONOGESTREL
     Dosage: 1 ROD, STRENGTH: 68 (UNIT UNKNOWN)
     Route: 059
     Dates: start: 20120423

REACTIONS (2)
  - Medical device complication [Not Recovered/Not Resolved]
  - Device difficult to use [Recovered/Resolved]

NARRATIVE: CASE EVENT DATE: 20120423
